FAERS Safety Report 7235553-1 (Version None)
Quarter: 2011Q1

REPORT INFORMATION
  Report Type: 
  Country: None (occurrence: None)
  Receive Date: 20110120
  Receipt Date: 20110111
  Transmission Date: 20110831
  Serious: Yes (Disabling)
  Sender: FDA-Public Use
  Company Number: PHHO2011HN00930

PATIENT
  Sex: Female

DRUGS (2)
  1. EXELON [Suspect]
     Indication: DEMENTIA ALZHEIMER'S TYPE
     Dosage: UNK
     Dates: start: 20101019, end: 20110105
  2. ZIAC [Concomitant]

REACTIONS (3)
  - HALLUCINATIONS, MIXED [None]
  - PSYCHOMOTOR HYPERACTIVITY [None]
  - INSOMNIA [None]
